FAERS Safety Report 17437351 (Version 1)
Quarter: 2020Q1

REPORT INFORMATION
  Report Type: Spontaneous
  Country: PT (occurrence: PT)
  Receive Date: 20200219
  Receipt Date: 20200219
  Transmission Date: 20200409
  Serious: Yes (Hospitalization, Other)
  Sender: FDA-Public Use
  Company Number: PT-MYLANLABS-2020M1018162

PATIENT
  Age: 72 Year
  Sex: Female

DRUGS (16)
  1. CLARITHROMYCIN. [Suspect]
     Active Substance: CLARITHROMYCIN
     Indication: RESPIRATORY TRACT INFECTION
     Dosage: BID FOR 7 DAYS
     Dates: start: 20191129
  2. XARELTO [Interacting]
     Active Substance: RIVAROXABAN
     Indication: ATRIAL FIBRILLATION
     Dosage: 10 MG
  3. TROSPIUM CHLORIDE. [Concomitant]
     Active Substance: TROSPIUM CHLORIDE
     Dosage: UNK
  4. FOLICIL [Concomitant]
     Active Substance: FOLIC ACID
     Dosage: UNK
  5. ESLICARBAZEPINA [Concomitant]
     Active Substance: ESLICARBAZEPINE
     Dosage: UNK
  6. EZETIMIBE. [Concomitant]
     Active Substance: EZETIMIBE
     Dosage: UNK
  7. ROSUVASTATINA                      /01588601/ [Concomitant]
     Active Substance: ROSUVASTATIN
     Dosage: UNK
  8. BISOPROLOL [Concomitant]
     Active Substance: BISOPROLOL
     Dosage: UNK
  9. STAGID [Concomitant]
     Active Substance: METFORMIN PAMOATE
     Dosage: UNK
  10. PANTOPRAZOL                        /01263201/ [Concomitant]
     Active Substance: PANTOPRAZOLE
     Dosage: UNK
  11. CLOBAZAM. [Concomitant]
     Active Substance: CLOBAZAM
     Dosage: UNK
  12. ZANIPRESS [Concomitant]
     Active Substance: ENALAPRIL MALEATE\LERCANIDIPINE HYDROCHLORIDE
     Dosage: 20/20MG
  13. TRIFLUSAL [Concomitant]
     Active Substance: TRIFLUSAL
     Dosage: UNK
  14. XARELTO [Interacting]
     Active Substance: RIVAROXABAN
     Dosage: 15 MG, QD
     Route: 048
  15. MIRTAZAPINA [Concomitant]
     Active Substance: MIRTAZAPINE
     Dosage: UNK
  16. JANUVIA [Concomitant]
     Active Substance: SITAGLIPTIN PHOSPHATE
     Dosage: UNK

REACTIONS (4)
  - Abdominal pain [Recovering/Resolving]
  - Respiratory tract infection [Recovering/Resolving]
  - Drug interaction [Unknown]
  - Pulmonary haematoma [Recovering/Resolving]

NARRATIVE: CASE EVENT DATE: 20191129
